FAERS Safety Report 6585801-6 (Version None)
Quarter: 2010Q1

REPORT INFORMATION
  Report Type: 
  Country: None (occurrence: None)
  Receive Date: 20100217
  Receipt Date: 20100209
  Transmission Date: 20100710
  Serious: Yes (Life-Threatening, Hospitalization)
  Sender: FDA-Public Use
  Company Number: US-ALLERGAN-1001761US

PATIENT
  Sex: Male

DRUGS (2)
  1. BOTOX [Suspect]
     Indication: MUSCLE SPASTICITY
     Dosage: UNK
     Route: 030
     Dates: start: 20040625, end: 20040625
  2. BOTOX [Suspect]
     Dosage: UNK
     Route: 030
     Dates: start: 20070214, end: 20070214

REACTIONS (4)
  - APHASIA [None]
  - APNOEA [None]
  - MALARIA [None]
  - PNEUMONIA [None]
